FAERS Safety Report 9568268 (Version 2)
Quarter: 2013Q3

REPORT INFORMATION
  Report Type: Spontaneous
  Country: US (occurrence: US)
  Receive Date: 20130930
  Receipt Date: 20130930
  Transmission Date: 20140515
  Serious: No
  Sender: FDA-Public Use
  Company Number: US-AMGEN-USASP2013033657

PATIENT
  Age: 59 Year
  Sex: Female
  Weight: 56.69 kg

DRUGS (10)
  1. ENBREL [Suspect]
     Indication: PSORIATIC ARTHROPATHY
     Dosage: 50 MG, QWK
     Route: 058
     Dates: start: 20130401
  2. DEXILANT [Concomitant]
     Dosage: 30 MG, UNK
  3. CARAFATE [Concomitant]
     Dosage: 1 GM, UNK
  4. METHOTREXATE [Concomitant]
     Dosage: 2.5 MG, QD
  5. SINUTAB NON-DRYING [Concomitant]
     Dosage: UNK
  6. SENNA                              /00142201/ [Concomitant]
     Dosage: 8.6 MG, UNK
  7. EXCEDRIN                           /00110301/ [Concomitant]
     Dosage: UNK
  8. VITAMIN B12                        /00056201/ [Concomitant]
     Dosage: 1000 CR,  UNK
  9. CALCIUM [Concomitant]
     Dosage: 500 UNK, UNK
  10. VITAMIN D3 [Concomitant]
     Dosage: UNK

REACTIONS (1)
  - Arthralgia [Unknown]
